FAERS Safety Report 20702325 (Version 2)
Quarter: 2022Q2

REPORT INFORMATION
  Report Type: Spontaneous
  Country: JP (occurrence: JP)
  Receive Date: 20220412
  Receipt Date: 20220614
  Transmission Date: 20220720
  Serious: Yes (Hospitalization)
  Sender: FDA-Public Use
  Company Number: JP-MYLANLABS-2022M1025794

PATIENT
  Age: 30 Year
  Sex: Male

DRUGS (2)
  1. EPIPEN [Suspect]
     Active Substance: EPINEPHRINE
     Indication: Anaphylactic reaction
     Dosage: UNK
     Route: 030
  2. GARENOXACIN MESYLATE [Concomitant]
     Active Substance: GARENOXACIN MESYLATE
     Indication: Congenital aural fistula
     Route: 048

REACTIONS (1)
  - Kounis syndrome [Recovered/Resolved]
